FAERS Safety Report 20743855 (Version 1)
Quarter: 2022Q2

REPORT INFORMATION
  Report Type: Spontaneous
  Country: US (occurrence: US)
  Receive Date: 20220425
  Receipt Date: 20220425
  Transmission Date: 20220721
  Serious: No
  Sender: FDA-Public Use
  Company Number: US-ALVOGEN-2022-ALVOGEN-118038

PATIENT
  Sex: Female

DRUGS (1)
  1. ESTRADIOL [Suspect]
     Active Substance: ESTRADIOL
     Indication: Product used for unknown indication
     Route: 067
     Dates: start: 202102, end: 202103

REACTIONS (2)
  - Vulvovaginal pruritus [Recovered/Resolved]
  - Muscle spasms [Recovered/Resolved]
